FAERS Safety Report 6227053-2 (Version None)
Quarter: 2009Q2

REPORT INFORMATION
  Report Type: 
  Country: None (occurrence: None)
  Receive Date: 20090612
  Receipt Date: 20090527
  Transmission Date: 20091009
  Serious: No
  Sender: FDA-Public Use
  Company Number: US-ABBOTT-09P-163-0576098-00

PATIENT
  Sex: Female
  Weight: 70.37 kg

DRUGS (7)
  1. HUMIRA [Suspect]
     Indication: CROHN'S DISEASE
     Route: 058
  2. HUMIRA [Suspect]
     Route: 058
  3. INDERAL [Concomitant]
     Indication: HYPERTENSION
     Route: 048
  4. DYAZIDE [Concomitant]
     Indication: DIURETIC THERAPY
     Dosage: 37.5/?
     Route: 048
  5. ASACOL [Concomitant]
     Indication: CROHN'S DISEASE
     Dosage: 4/DAY
     Route: 048
  6. FOLIC ACID [Concomitant]
     Indication: DRUG USE FOR UNKNOWN INDICATION
     Route: 048
  7. PROZAC [Concomitant]
     Indication: DEPRESSION
     Route: 048

REACTIONS (3)
  - ARTHRALGIA [None]
  - COUGH [None]
  - MYALGIA [None]
